FAERS Safety Report 23092657 (Version 1)
Quarter: 2023Q4

REPORT INFORMATION
  Report Type: Spontaneous
  Country: ES (occurrence: ES)
  Receive Date: 20231021
  Receipt Date: 20231021
  Transmission Date: 20240110
  Serious: Yes (Hospitalization)
  Sender: FDA-Public Use
  Company Number: None

PATIENT
  Age: 70 Year
  Sex: Male

DRUGS (3)
  1. CIPROFLOXACIN [Suspect]
     Active Substance: CIPROFLOXACIN
     Indication: Abdominal infection
     Dosage: 750.0 MG C/12 H, CIPROFLOXACIN (2049A)
     Dates: start: 20230223, end: 20230307
  2. RIFAMPIN [Suspect]
     Active Substance: RIFAMPIN
     Indication: Abdominal infection
     Dosage: 600 MILLIGRAM DAILY; 600.0 MG C/24 H, RIFAMPICIN (2273A)
     Dates: start: 20230215, end: 20230307
  3. ASPIRIN [Concomitant]
     Active Substance: ASPIRIN
     Indication: Arteriosclerosis
     Dosage: 100.0 MG DE, ADIRO 100 MG GASTRORE-RESISTANT EFG TABLETS, 30 TABLETS (PVC-ALUMINUM)
     Dates: start: 20220708

REACTIONS (1)
  - Tubulointerstitial nephritis [Recovered/Resolved]

NARRATIVE: CASE EVENT DATE: 20230307
